FAERS Safety Report 20532508 (Version 3)
Quarter: 2022Q3

REPORT INFORMATION
  Report Type: Report from Study
  Country: US (occurrence: US)
  Receive Date: 20220301
  Receipt Date: 20220720
  Transmission Date: 20221026
  Serious: Yes (Hospitalization)
  Sender: FDA-Public Use
  Company Number: None

PATIENT

DRUGS (7)
  1. PEGASPARGASE [Suspect]
     Active Substance: PEGASPARGASE
     Indication: Acute lymphocytic leukaemia
     Dosage: 3300 IU, D15, D43
     Route: 042
     Dates: start: 20161014
  2. MERCAPTOPURINE [Suspect]
     Active Substance: MERCAPTOPURINE
     Indication: Acute lymphocytic leukaemia
     Dosage: 50 MG, DAILY, DAYS 1-14, 29-42
     Route: 048
     Dates: start: 20160930, end: 20170103
  3. MERCAPTOPURINE [Suspect]
     Active Substance: MERCAPTOPURINE
     Dosage: 50 MG, DAILY, DAYS 1-14, 29-42
     Route: 048
     Dates: start: 20170112
  4. VINCRISTINE SULFATE [Suspect]
     Active Substance: VINCRISTINE SULFATE
     Indication: Acute lymphocytic leukaemia
     Dosage: 1.97 MG, DAYS 15, 22, 43, 50
     Route: 042
     Dates: start: 20161014, end: 20170103
  5. VINCRISTINE SULFATE [Suspect]
     Active Substance: VINCRISTINE SULFATE
     Dosage: 1.97 MG, DAYS 15, 22, 43, 50
     Route: 042
     Dates: start: 20170110
  6. RUXOLITINIB PHOSPHATE [Suspect]
     Active Substance: RUXOLITINIB PHOSPHATE
     Indication: Acute lymphocytic leukaemia
     Dosage: 50 MG, BID, DAYS 1-14, 29-42
     Route: 048
     Dates: start: 20160903, end: 20170103
  7. RUXOLITINIB PHOSPHATE [Suspect]
     Active Substance: RUXOLITINIB PHOSPHATE
     Dosage: 50 MG, BID, DAYS 1-14, 29-42
     Route: 048
     Dates: start: 20170110

REACTIONS (1)
  - Decreased appetite [Recovered/Resolved]

NARRATIVE: CASE EVENT DATE: 20170105
